FAERS Safety Report 5976848-9 (Version None)
Quarter: 2008Q4

REPORT INFORMATION
  Report Type: 
  Country: None (occurrence: None)
  Receive Date: 20081203
  Receipt Date: 20080214
  Transmission Date: 20090506
  Serious: No
  Sender: FDA-Public Use
  Company Number: US-AMGEN-KDL264260

PATIENT
  Sex: Female

DRUGS (5)
  1. ENBREL [Suspect]
     Indication: PSORIATIC ARTHROPATHY
     Route: 058
     Dates: start: 20071020
  2. SYNTHROID [Concomitant]
     Dates: start: 20071004
  3. NAPROXEN [Concomitant]
     Dates: start: 20071004
  4. PREDNISONE TAB [Concomitant]
     Dates: start: 20071004
  5. COLACE [Concomitant]
     Dates: start: 20071004

REACTIONS (1)
  - INJECTION SITE HAEMATOMA [None]
